FAERS Safety Report 13527618 (Version 2)
Quarter: 2017Q2

REPORT INFORMATION
  Report Type: Spontaneous
  Country: US (occurrence: US)
  Receive Date: 20170509
  Receipt Date: 20170531
  Transmission Date: 20170830
  Serious: Yes (Hospitalization, Other)
  Sender: FDA-Public Use
  Company Number: US-BAYER-2017-087029

PATIENT
  Age: 21 Year
  Sex: Female
  Weight: 47.17 kg

DRUGS (1)
  1. MIRENA [Suspect]
     Active Substance: LEVONORGESTREL
     Indication: CONTRACEPTION
     Dosage: 20 MCG/24HR, CONT
     Route: 015
     Dates: start: 20121003, end: 20160705

REACTIONS (10)
  - Abdominal pain lower [None]
  - Anxiety [Not Recovered/Not Resolved]
  - Back pain [None]
  - Depression [Not Recovered/Not Resolved]
  - Dyspareunia [None]
  - Pelvic inflammatory disease [None]
  - Pelvic pain [None]
  - Device issue [None]
  - Pelvic infection [None]
  - Uterine perforation [None]

NARRATIVE: CASE EVENT DATE: 2012
